FAERS Safety Report 5430373-2 (Version None)
Quarter: 2007Q3

REPORT INFORMATION
  Report Type: 
  Country: None (occurrence: None)
  Receive Date: 20070830
  Receipt Date: 20070824
  Transmission Date: 20080115
  Serious: Yes (Life-Threatening, Hospitalization)
  Sender: FDA-Public Use
  Company Number: US-JNJFOC-20070805085

PATIENT
  Age: 31 Year
  Sex: Female

DRUGS (13)
  1. PREZISTA [Suspect]
     Indication: HIV INFECTION
     Route: 048
  2. RITONAVIR [Suspect]
     Indication: HIV INFECTION
     Route: 048
  3. MK-0518 [Suspect]
     Indication: HIV INFECTION
     Route: 048
  4. TRUVADA [Suspect]
     Indication: HIV INFECTION
     Dosage: DOSE 300/200 MG
     Route: 048
  5. AMITRIPTYLINE HCL [Suspect]
     Indication: DRUG USE FOR UNKNOWN INDICATION
     Route: 065
  6. AZITHROMYCIN [Concomitant]
     Route: 065
  7. CYCLOBENZAPRINE HCL [Concomitant]
     Route: 065
  8. DAPSONE [Concomitant]
     Route: 065
  9. PROCRIT [Concomitant]
     Route: 065
  10. PROCRIT [Concomitant]
     Route: 065
  11. GABAPENTIN [Concomitant]
     Route: 065
  12. OMEPRAZOLE [Concomitant]
     Route: 065
  13. PROMETHAZINE [Concomitant]
     Route: 065

REACTIONS (4)
  - ANAEMIA [None]
  - COAGULOPATHY [None]
  - HEPATITIS [None]
  - RENAL FAILURE ACUTE [None]
